FAERS Safety Report 12206209 (Version 4)
Quarter: 2016Q2

REPORT INFORMATION
  Report Type: Spontaneous
  Country: US (occurrence: US)
  Receive Date: 20160324
  Receipt Date: 20160420
  Transmission Date: 20160815
  Serious: Yes (Hospitalization)
  Sender: FDA-Public Use
  Company Number: US-HORIZON-RAV-0055-2016

PATIENT
  Age: 20 Year
  Sex: Female

DRUGS (5)
  1. ATIVAN [Concomitant]
     Active Substance: LORAZEPAM
     Dates: start: 201601
  2. KLONOPIN [Concomitant]
     Active Substance: CLONAZEPAM
     Dates: start: 201601
  3. RAVICTI [Suspect]
     Active Substance: GLYCEROL PHENYLBUTYRATE
     Indication: ORNITHINE TRANSCARBAMOYLASE DEFICIENCY
     Dosage: 2.6 ML THREE TIMES DAILY
     Dates: start: 20160211
  4. CLONIDINE. [Concomitant]
     Active Substance: CLONIDINE
     Dates: start: 201601
  5. CITRULLINE [Concomitant]
     Active Substance: CITRULLINE
     Indication: ORNITHINE TRANSCARBAMOYLASE DEFICIENCY

REACTIONS (3)
  - Aggression [Not Recovered/Not Resolved]
  - Tremor [Unknown]
  - Crying [Unknown]

NARRATIVE: CASE EVENT DATE: 201603
